FAERS Safety Report 11243425 (Version 2)
Quarter: 2015Q4

REPORT INFORMATION
  Report Type: Other
  Country: FR (occurrence: FR)
  Receive Date: 20150707
  Receipt Date: 20151012
  Transmission Date: 20160304
  Serious: Yes (Hospitalization, Other)
  Sender: FDA-Public Use
  Company Number: FR-SHIRE-FR201507175

PATIENT
  Sex: Male
  Weight: 88 kg

DRUGS (5)
  1. KARDEGIC [Concomitant]
     Active Substance: ASPIRIN LYSINE
     Indication: ARRHYTHMIA
     Dosage: 75 MG, 1X/DAY:QD (OD)
     Route: 048
     Dates: start: 19991201
  2. XAGRID [Suspect]
     Active Substance: ANAGRELIDE HYDROCHLORIDE
     Dosage: 1.5 MG (THREE CAPSULES), UNKNOWN (PER DAY)
     Route: 048
     Dates: start: 20001201
  3. BIPRETERAX                         /01421201/ [Concomitant]
     Active Substance: INDAPAMIDE\PERINDOPRIL ERBUMINE
     Indication: HYPERTENSION
     Dosage: 10 MG, 1X/DAY:QD
     Route: 048
     Dates: start: 19991201
  4. XAGRID [Suspect]
     Active Substance: ANAGRELIDE HYDROCHLORIDE
     Indication: ESSENTIAL THROMBOCYTHAEMIA
     Dosage: 2.0 MG, OTHER (4 CAPSULES/DAY)
     Route: 048
     Dates: start: 20130701
  5. COLCHICINE. [Concomitant]
     Active Substance: COLCHICINE
     Indication: GOUT
     Dosage: UNK, UNKNOWN
     Route: 065
     Dates: start: 20150501, end: 20150505

REACTIONS (4)
  - Haemorrhoids [Unknown]
  - Anaemia [Unknown]
  - Weight decreased [Recovered/Resolved]
  - Anxiety [Unknown]

NARRATIVE: CASE EVENT DATE: 2015
